FAERS Safety Report 21455304 (Version 1)
Quarter: 2022Q4

REPORT INFORMATION
  Report Type: Report from Study
  Country: IL (occurrence: IL)
  Receive Date: 20221014
  Receipt Date: 20221014
  Transmission Date: 20230113
  Serious: Yes (Hospitalization)
  Sender: FDA-Public Use
  Company Number: IL-CELGENE-ISR-20210904301

PATIENT
  Age: 42 Year
  Sex: Male
  Weight: 65.6 kg

DRUGS (14)
  1. DEXAMETHASONE [Suspect]
     Active Substance: DEXAMETHASONE
     Indication: Chemotherapy
     Dosage: 20 MILLIGRAM
     Route: 048
     Dates: start: 20200924, end: 20200925
  2. POMALIDOMIDE [Suspect]
     Active Substance: POMALIDOMIDE
     Indication: Plasma cell myeloma recurrent
     Route: 048
     Dates: start: 20200926
  3. POMALIDOMIDE [Suspect]
     Active Substance: POMALIDOMIDE
     Route: 048
     Dates: start: 20200924, end: 20200924
  4. DARATUMUMAB [Suspect]
     Active Substance: DARATUMUMAB
     Indication: Plasma cell myeloma recurrent
     Dosage: 1800 MILLIGRAM
     Route: 058
     Dates: start: 20200924, end: 20200924
  5. OMEPRAZOLE [Concomitant]
     Active Substance: OMEPRAZOLE
     Indication: Prophylaxis
     Dosage: FREQUENCY TEXT: NOT PROVIDED
     Route: 048
     Dates: start: 20200921
  6. RECLAST [Concomitant]
     Active Substance: ZOLEDRONIC ACID
     Indication: Hypercalcaemia
     Dosage: FREQUENCY TEXT: 4 MG 1 IN 1 TOTAL
     Route: 042
     Dates: start: 20200921, end: 20200921
  7. ZOVIRAX [Concomitant]
     Active Substance: ACYCLOVIR
     Indication: Antiviral prophylaxis
     Dosage: 400 MILLIGRAM
     Route: 048
     Dates: start: 20200921, end: 20201117
  8. ALLOPURINOL [Concomitant]
     Active Substance: ALLOPURINOL
     Indication: Prophylaxis
     Dosage: FREQUENCY TEXT: 300 MG,1 IN 1 TOTAL
     Route: 048
     Dates: start: 20200924, end: 20200924
  9. SODIUM CHLORIDE [Concomitant]
     Active Substance: SODIUM CHLORIDE
     Indication: Prophylaxis against dehydration
     Dosage: FREQUENCY TEXT: (4000 ML,CONTINUOUS)
     Route: 042
     Dates: start: 20200924, end: 20200926
  10. ENOXAPARIN SODIUM [Concomitant]
     Active Substance: ENOXAPARIN SODIUM
     Indication: Prophylaxis
     Dosage: FREQUENCY TEXT: (20 MG,1 IN 1 D)
     Route: 058
     Dates: start: 20200925, end: 20200925
  11. ENOXAPARIN SODIUM [Concomitant]
     Active Substance: ENOXAPARIN SODIUM
     Dosage: FREQUENCY TEXT: (40 MG,1 IN 1 D)
     Route: 058
     Dates: start: 20200926, end: 20200927
  12. POTASSIUM CHLORIDE [Concomitant]
     Active Substance: POTASSIUM CHLORIDE
     Indication: Mineral supplementation
     Dosage: 3 GRAM
     Route: 042
     Dates: start: 20200925, end: 20200925
  13. MAGNESIUM SULFATE [Concomitant]
     Active Substance: MAGNESIUM SULFATE
     Indication: Mineral supplementation
     Dosage: 2 GRAM
     Route: 042
     Dates: start: 20200925, end: 20200925
  14. BACTRIM [Concomitant]
     Active Substance: SULFAMETHOXAZOLE\TRIMETHOPRIM
     Indication: Infection prophylaxis
     Dosage: 0.2857 DOSAGE FORMS
     Route: 048
     Dates: start: 20200926, end: 20201103

REACTIONS (1)
  - Hypophosphataemia [Recovered/Resolved]

NARRATIVE: CASE EVENT DATE: 20200925
